FAERS Safety Report 25298411 (Version 3)
Quarter: 2025Q3

REPORT INFORMATION
  Report Type: Spontaneous
  Country: EU (occurrence: EU)
  Receive Date: 20250512
  Receipt Date: 20250828
  Transmission Date: 20251021
  Serious: Yes (Life-Threatening, Hospitalization, Other)
  Sender: AMGEN
  Company Number: EU-AMGEN-DEUSP2025087756

PATIENT
  Age: 51 Year
  Sex: Female

DRUGS (21)
  1. PROLIA [Suspect]
     Active Substance: DENOSUMAB
     Indication: Product used for unknown indication
     Dosage: 60 MILLIGRAM, Q6MO
     Route: 058
     Dates: start: 20241001
  2. ARANESP [Suspect]
     Active Substance: DARBEPOETIN ALFA
     Indication: Product used for unknown indication
     Dosage: 30 MICROGRAM, Q2WK
     Route: 058
     Dates: start: 202412, end: 2025
  3. ASPIRIN [Concomitant]
     Active Substance: ASPIRIN
     Dosage: 100 MILLIGRAM, QD
     Route: 065
  4. BISOPROLOL [Concomitant]
     Active Substance: BISOPROLOL
     Dosage: 2.5 MILLIGRAM, BID
     Route: 065
  5. ATORVASTATIN [Concomitant]
     Active Substance: ATORVASTATIN
     Dosage: 40 MILLIGRAM, QD
     Route: 065
  6. LERCANIDIPINE [Concomitant]
     Active Substance: LERCANIDIPINE
     Dosage: 10 MILLIGRAM, QD
     Route: 065
  7. EZETIMIBE [Concomitant]
     Active Substance: EZETIMIBE
     Dosage: 10 MILLIGRAM, QD
     Route: 065
  8. TORSEMIDE [Concomitant]
     Active Substance: TORSEMIDE
     Dosage: 10 MILLIGRAM, BID
     Route: 065
  9. XIPAMIDE [Concomitant]
     Active Substance: XIPAMIDE
     Dosage: 5 MILLIGRAM, QD
     Route: 065
  10. CHOLECALCIFEROL [Concomitant]
     Active Substance: CHOLECALCIFEROL
     Dosage: 20000 INTERNATIONAL UNIT, QWK
     Route: 065
  11. AMINOPHYLLINE\QUININE SULFATE [Concomitant]
     Active Substance: AMINOPHYLLINE\QUININE SULFATE
     Dosage: 200 MILLIGRAM, QD
     Route: 065
  12. INSULIN LISPRO [Concomitant]
     Active Substance: INSULIN LISPRO
     Route: 058
  13. TOUJEO [Concomitant]
     Active Substance: INSULIN GLARGINE
     Dosage: 100 IU/ML, 16 INTERNATIONAL UNIT, QD
     Route: 058
  14. ETANERCEPT [Concomitant]
     Active Substance: ETANERCEPT
     Route: 065
  15. METAMIZOLE [Concomitant]
     Active Substance: METAMIZOLE
     Dosage: 500 MILLIGRAM, QHS
     Route: 065
  16. SODIUM PICOSULFATE [Concomitant]
     Active Substance: SODIUM PICOSULFATE
     Route: 065
  17. CANDESARTAN [Concomitant]
     Active Substance: CANDESARTAN
     Dosage: 8 GRAM, QD
     Route: 065
  18. INDAPAMIDE [Concomitant]
     Active Substance: INDAPAMIDE
     Dosage: 1.5 MILLIGRAM, QD
     Route: 065
  19. PANTOPRAZOLE [Concomitant]
     Active Substance: PANTOPRAZOLE
     Dosage: 40 MILLIGRAM, QD
     Route: 065
  20. FEBUXOSTAT [Concomitant]
     Active Substance: FEBUXOSTAT
     Dosage: 80 MILLIGRAM, QD
     Route: 048
  21. CALCIUM ACETATE [Concomitant]
     Active Substance: CALCIUM ACETATE
     Dosage: 700 MILLIGRAM, QD
     Route: 048

REACTIONS (28)
  - Coronary artery disease [Unknown]
  - Chronic kidney disease [Unknown]
  - Cerebral infarction [Unknown]
  - Reversible cerebral vasoconstriction syndrome [Unknown]
  - Cerebral vascular occlusion [Unknown]
  - Carotid artery stenosis [Unknown]
  - Angina unstable [Unknown]
  - Pericardial effusion [Unknown]
  - Pleural effusion [Unknown]
  - Vasculitis [Unknown]
  - Diabetic retinal oedema [Unknown]
  - Diabetic retinopathy [Unknown]
  - Diabetic nephropathy [Unknown]
  - Diabetic neuropathy [Unknown]
  - Chronic gastritis [Unknown]
  - Tumour marker increased [Unknown]
  - Osteopenia [Unknown]
  - Peripheral pulse decreased [Unknown]
  - Hypoglycaemia [Unknown]
  - Sleep apnoea syndrome [Unknown]
  - Obesity [Unknown]
  - Oedema peripheral [Unknown]
  - Hypercholesterolaemia [Unknown]
  - Hypertension [Unknown]
  - Dizziness [Unknown]
  - Headache [Unknown]
  - Rash [Recovering/Resolving]
  - Bone pain [Not Recovered/Not Resolved]

NARRATIVE: CASE EVENT DATE: 20250326
